FAERS Safety Report 5641365-2 (Version None)
Quarter: 2008Q1

REPORT INFORMATION
  Report Type: 
  Country: None (occurrence: None)
  Receive Date: 20080227
  Receipt Date: 20070703
  Transmission Date: 20080703
  Serious: No
  Sender: FDA-Public Use
  Company Number: A0661146A

PATIENT
  Age: 27 Year
  Sex: Female

DRUGS (1)
  1. TARGET NICOTINE GUM 2MG, MINT [Suspect]
     Dates: start: 20070601, end: 20070613

REACTIONS (5)
  - LACERATION [None]
  - NASAL DISCOMFORT [None]
  - NASAL OEDEMA [None]
  - RHINITIS [None]
  - SCAB [None]
